FAERS Safety Report 4645944-0 (Version None)
Quarter: 2005Q2

REPORT INFORMATION
  Report Type: 
  Country: None (occurrence: None)
  Receive Date: 20050425
  Receipt Date: 20050411
  Transmission Date: 20051028
  Serious: Yes (Other)
  Sender: FDA-Public Use
  Company Number: 2005057710

PATIENT
  Age: 72 Year
  Sex: Female
  Weight: 104.3273 kg

DRUGS (7)
  1. BEXTRA [Suspect]
     Indication: ARTHRITIS
     Dosage: 20 MG (20 MG, 1 IN 1 D)
     Dates: start: 20040101, end: 20050101
  2. PAROXETINE HCL [Concomitant]
  3. VICODIN [Concomitant]
  4. ANTI-DIABETIC (ANTI-DIABETIC) [Concomitant]
  5. ZOLPIDEM TARTRATE [Concomitant]
  6. ANTIBIOTICS (ANTIBIOTICS) [Concomitant]
  7. ACETAMINOPHEN [Concomitant]

REACTIONS (10)
  - BRONCHITIS [None]
  - EAR PAIN [None]
  - EATING DISORDER [None]
  - KIDNEY INFECTION [None]
  - MALAISE [None]
  - PHARYNGOLARYNGEAL PAIN [None]
  - PNEUMONIA [None]
  - STEVENS-JOHNSON SYNDROME [None]
  - STOMATITIS [None]
  - THERAPY NON-RESPONDER [None]
